FAERS Safety Report 7419381-X (Version None)
Quarter: 2011Q2

REPORT INFORMATION
  Report Type: 
  Country: None (occurrence: None)
  Receive Date: 20110415
  Receipt Date: 20110408
  Transmission Date: 20111010
  Serious: Yes (Hospitalization, Other)
  Sender: FDA-Public Use
  Company Number: US-RB-025558-11

PATIENT
  Sex: Male

DRUGS (3)
  1. SUBOXONE [Suspect]
     Dosage: SUBLINGUAL FILM - ^TAPER DOWN TO 2 MG^
     Route: 060
     Dates: start: 20110201, end: 20110406
  2. SUBOXONE [Suspect]
     Indication: DRUG DEPENDENCE
     Dosage: SUBLINGUAL FILM
     Route: 060
     Dates: start: 20100101, end: 20110201
  3. SUBOXONE [Suspect]
     Dosage: SUBLINGUAL FILM - ^1 MG^
     Route: 060
     Dates: start: 20110407

REACTIONS (8)
  - NAUSEA [None]
  - PALPITATIONS [None]
  - CARDIAC FAILURE CONGESTIVE [None]
  - DYSPNOEA [None]
  - DRUG WITHDRAWAL SYNDROME [None]
  - WRONG TECHNIQUE IN DRUG USAGE PROCESS [None]
  - TREMOR [None]
  - EXTRASYSTOLES [None]
